FAERS Safety Report 4429967-2 (Version None)
Quarter: 2004Q3

REPORT INFORMATION
  Report Type: 
  Country: None (occurrence: None)
  Receive Date: 20040820
  Receipt Date: 20040812
  Transmission Date: 20050211
  Serious: Yes (Other)
  Sender: FDA-Public Use
  Company Number: PHNU2004DE02885

PATIENT
  Sex: Male

DRUGS (2)
  1. CO-DIOVAN FORTE [Suspect]
     Indication: HYPERTENSION
     Dosage: 1 DF, QD
     Route: 048
     Dates: start: 20040101, end: 20040701
  2. SIMVASTATIN [Concomitant]
     Dosage: UNK, UNK

REACTIONS (2)
  - HAEMATOMA [None]
  - HAEMORRHAGE [None]
